FAERS Safety Report 5479122-2 (Version None)
Quarter: 2007Q4

REPORT INFORMATION
  Report Type: 
  Country: None (occurrence: None)
  Receive Date: 20071006
  Receipt Date: 20070926
  Transmission Date: 20080405
  Serious: Yes (Other)
  Sender: FDA-Public Use
  Company Number: AU-PFIZER INC-2007082111

PATIENT
  Sex: Female

DRUGS (2)
  1. LIPITOR [Suspect]
  2. SALAZOPYRIN [Suspect]
     Indication: CROHN'S DISEASE

REACTIONS (2)
  - CROHN'S DISEASE [None]
  - NEUROPATHY PERIPHERAL [None]
